FAERS Safety Report 13322607 (Version 1)
Quarter: 2017Q1

REPORT INFORMATION
  Report Type: Spontaneous
  Country: GB (occurrence: GB)
  Receive Date: 20170310
  Receipt Date: 20170310
  Transmission Date: 20170428
  Serious: Yes (Death, Other)
  Sender: FDA-Public Use
  Company Number: GB-AMGEN-GBRSP2017037014

PATIENT
  Sex: Female

DRUGS (3)
  1. ADOPORT [Concomitant]
     Active Substance: TACROLIMUS
     Dosage: 2 MG  AT AM , 1.5 MG AT PM
  2. ARANESP [Suspect]
     Active Substance: DARBEPOETIN ALFA
     Indication: PRODUCT USED FOR UNKNOWN INDICATION
     Dosage: UNK
     Route: 065
  3. AZATHIOPRINE. [Concomitant]
     Active Substance: AZATHIOPRINE
     Dosage: 50 MG, QD

REACTIONS (1)
  - Death [Fatal]
